FAERS Safety Report 11094957 (Version 3)
Quarter: 2015Q2

REPORT INFORMATION
  Report Type: Spontaneous
  Country: SE (occurrence: SE)
  Receive Date: 20150506
  Receipt Date: 20150603
  Transmission Date: 20150821
  Serious: Yes (Other)
  Sender: FDA-Public Use
  Company Number: SE-PFIZER INC-2015023101

PATIENT
  Age: 77 Year
  Sex: Female

DRUGS (12)
  1. PREDNISOLON PFIZER [Suspect]
     Active Substance: PREDNISOLONE
     Dosage: 60 UNK, UNK
     Dates: start: 201409
  2. ESOMEPRAZOLE [Concomitant]
     Active Substance: ESOMEPRAZOLE
     Dosage: 6 DAYS PER WEEK
     Dates: start: 201302
  3. PREDNISOLON PFIZER [Suspect]
     Active Substance: PREDNISOLONE
     Dosage: 17.5 MG, 1X/DAY
     Dates: end: 20150226
  4. PREDNISOLON PFIZER [Suspect]
     Active Substance: PREDNISOLONE
     Dosage: 10 MG, DAILY
  5. PREDNISOLON PFIZER [Suspect]
     Active Substance: PREDNISOLONE
     Indication: TEMPORAL ARTERITIS
     Dosage: 6.25 MG, UNK
     Dates: end: 201407
  6. PREDNISOLON PFIZER [Suspect]
     Active Substance: PREDNISOLONE
     Dosage: 15 MG, 1X/DAY
     Dates: start: 20150227
  7. PREDNISOLON ALTERNOVA [Suspect]
     Active Substance: PREDNISOLONE
     Dosage: UNK
  8. BETOLVIDON [Concomitant]
     Active Substance: CYANOCOBALAMIN
     Dosage: UNK
     Dates: start: 201302
  9. KALCIPOS-D [Concomitant]
     Active Substance: CALCIUM CARBONATE\CHOLECALCIFEROL
     Dosage: UNK, 1X/DAY
     Dates: start: 201302
  10. PREDNISOLON PFIZER [Suspect]
     Active Substance: PREDNISOLONE
     Indication: POLYMYALGIA RHEUMATICA
     Dosage: 25 MG, UNK
     Dates: start: 20130204
  11. ALENDRONAT [Concomitant]
     Active Substance: ALENDRONATE SODIUM
     Dosage: UNK
     Dates: start: 201302
  12. PREDNISOLON PFIZER [Suspect]
     Active Substance: PREDNISOLONE
     Dosage: 10 MG, UNK
     Dates: start: 201407

REACTIONS (7)
  - Discomfort [Not Recovered/Not Resolved]
  - Cataract [Not Recovered/Not Resolved]
  - Fatigue [Recovering/Resolving]
  - Dizziness [Not Recovered/Not Resolved]
  - Intraocular pressure increased [Not Recovered/Not Resolved]
  - Somnolence [Not Recovered/Not Resolved]
  - Limb discomfort [Not Recovered/Not Resolved]

NARRATIVE: CASE EVENT DATE: 201407
